FAERS Safety Report 5871931-0 (Version None)
Quarter: 2008Q3

REPORT INFORMATION
  Report Type: 
  Country: None (occurrence: None)
  Receive Date: 20080902
  Receipt Date: 20060221
  Transmission Date: 20090109
  Serious: Yes (Hospitalization)
  Sender: FDA-Public Use
  Company Number: 2008AL009364

PATIENT
  Age: 51 Year
  Sex: Female

DRUGS (6)
  1. DICLOFENAC SODIUM [Suspect]
     Indication: POSTOPERATIVE ANALGESIA
  2. IMIGLUCERASE [Concomitant]
  3. LANSOPRAZOLE [Concomitant]
  4. PRENISOLONE [Concomitant]
  5. ALENDRONATE SODIUM [Concomitant]
  6. CLARITHROMYCIN [Concomitant]

REACTIONS (5)
  - ANAEMIA [None]
  - FLUID INTAKE REDUCED [None]
  - GASTROINTESTINAL ULCER HAEMORRHAGE [None]
  - HAEMODIALYSIS [None]
  - RENAL FAILURE [None]
